FAERS Safety Report 15997281 (Version 1)
Quarter: 2019Q1

REPORT INFORMATION
  Report Type: Report from Study
  Country: None (occurrence: US)
  Receive Date: 20190222
  Receipt Date: 20190222
  Transmission Date: 20190418
  Serious: Yes (Other)
  Sender: FDA-Public Use
  Company Number: US-VIFOR (INTERNATIONAL) INC.-VIT-2019-00209

PATIENT
  Age: 61 Year
  Sex: Male
  Weight: 78.09 kg

DRUGS (12)
  1. VELTASSA [Suspect]
     Active Substance: PATIROMER
     Indication: HYPERKALAEMIA
     Route: 048
     Dates: start: 20190110, end: 20190114
  2. ASPIRIN. [Concomitant]
     Active Substance: ASPIRIN
  3. MULTI VITAMIN [Concomitant]
     Active Substance: VITAMINS
  4. METOPROLOL. [Concomitant]
     Active Substance: METOPROLOL
  5. LASIX [Concomitant]
     Active Substance: FUROSEMIDE
  6. OMEPRAZOLE. [Concomitant]
     Active Substance: OMEPRAZOLE
  7. ADCIRCA [Concomitant]
     Active Substance: TADALAFIL
  8. ALLOPURINOL. [Concomitant]
     Active Substance: ALLOPURINOL
  9. MONTELUKAST SODIUM. [Concomitant]
     Active Substance: MONTELUKAST SODIUM
  10. OMEGA 3 FISH OIL [Concomitant]
     Active Substance: FISH OIL\OMEGA-3 FATTY ACIDS
  11. LETAIRIS [Concomitant]
     Active Substance: AMBRISENTAN
  12. PRAVASTATIN. [Concomitant]
     Active Substance: PRAVASTATIN

REACTIONS (2)
  - Constipation [Recovered/Resolved]
  - Angina pectoris [Recovered/Resolved]

NARRATIVE: CASE EVENT DATE: 20190110
